FAERS Safety Report 5453124-4 (Version None)
Quarter: 2007Q3

REPORT INFORMATION
  Report Type: 
  Country: None (occurrence: None)
  Receive Date: 20070914
  Receipt Date: 20070904
  Transmission Date: 20080115
  Serious: Yes (Hospitalization, Other)
  Sender: FDA-Public Use
  Company Number: PFIZER INC-2007073983

PATIENT
  Age: 32 Year
  Sex: Female

DRUGS (1)
  1. CABERGOLINE [Suspect]
     Indication: HYPERPROLACTINAEMIA
     Route: 048

REACTIONS (6)
  - ABDOMINAL PAIN [None]
  - BLOOD PROLACTIN INCREASED [None]
  - DEPRESSION [None]
  - GASTRITIS [None]
  - HEPATIC FUNCTION ABNORMAL [None]
  - PANCREATIC DISORDER [None]
